FAERS Safety Report 4429537-6 (Version None)
Quarter: 2004Q3

REPORT INFORMATION
  Report Type: 
  Country: None (occurrence: None)
  Receive Date: 20040816
  Receipt Date: 20040730
  Transmission Date: 20050211
  Serious: Yes (Disabling)
  Sender: FDA-Public Use
  Company Number: 2004GB01887

PATIENT
  Sex: Male

DRUGS (2)
  1. FELODIPINE [Suspect]
  2. WARFARIN SODIUM [Concomitant]

REACTIONS (4)
  - HAEMARTHROSIS [None]
  - MOBILITY DECREASED [None]
  - MUSCULOSKELETAL STIFFNESS [None]
  - MYALGIA [None]
